FAERS Safety Report 18270342 (Version 1)
Quarter: 2020Q3

REPORT INFORMATION
  Report Type: Report from Study
  Country: IE (occurrence: IE)
  Receive Date: 20200915
  Receipt Date: 20200915
  Transmission Date: 20201103
  Serious: No
  Sender: FDA-Public Use
  Company Number: IE-JNJFOC-20200909942

PATIENT
  Age: 13 Year
  Sex: Male

DRUGS (4)
  1. STELARA [Suspect]
     Active Substance: USTEKINUMAB
     Indication: CROHN^S DISEASE
     Route: 058
     Dates: start: 20200903
  2. STELARA [Suspect]
     Active Substance: USTEKINUMAB
     Route: 042
  3. HUMERA [Concomitant]
     Active Substance: ADALIMUMAB
     Indication: PRODUCT USED FOR UNKNOWN INDICATION
     Route: 050
  4. METHOTREXATE. [Concomitant]
     Active Substance: METHOTREXATE
     Indication: PRODUCT USED FOR UNKNOWN INDICATION
     Route: 050

REACTIONS (4)
  - Vomiting [Recovered/Resolved]
  - Liver function test increased [Recovered/Resolved]
  - Off label use [Unknown]
  - Product use issue [Unknown]
